FAERS Safety Report 6265886-7 (Version None)
Quarter: 2009Q3

REPORT INFORMATION
  Report Type: 
  Country: None (occurrence: None)
  Receive Date: 20090709
  Receipt Date: 20090709
  Transmission Date: 20100115
  Serious: Yes (Other)
  Sender: FDA-Public Use
  Company Number: None

PATIENT
  Age: 64 Year
  Sex: Male
  Weight: 78.0187 kg

DRUGS (2)
  1. PROVIGIL [Suspect]
     Indication: SLEEP APNOEA SYNDROME
     Dosage: 1/2 TABLET OF 200 MG DAILY PO
     Route: 048
     Dates: start: 20090620, end: 20090620
  2. PROVIGIL [Suspect]
     Indication: SLEEP APNOEA SYNDROME
     Dosage: 1/2 TABLET OF 200 MG DAILY PO
     Route: 048
     Dates: start: 20090629, end: 20090702

REACTIONS (13)
  - AGITATION [None]
  - ANXIETY [None]
  - BURNING SENSATION [None]
  - CHEST PAIN [None]
  - CONFUSIONAL STATE [None]
  - DEPRESSION [None]
  - DIZZINESS [None]
  - FLUSHING [None]
  - GENITAL BURNING SENSATION [None]
  - HEART RATE INCREASED [None]
  - NERVOUSNESS [None]
  - PARAESTHESIA [None]
  - THINKING ABNORMAL [None]
